FAERS Safety Report 7578232-3 (Version None)
Quarter: 2011Q2

REPORT INFORMATION
  Report Type: 
  Country: None (occurrence: None)
  Receive Date: 20110628
  Receipt Date: 20110624
  Transmission Date: 20111010
  Serious: Yes (Death)
  Sender: FDA-Public Use
  Company Number: B0728705A

PATIENT
  Age: 45 Year
  Sex: Male

DRUGS (1)
  1. AVANDAMET [Suspect]
     Route: 048
     Dates: start: 20051201, end: 20071101

REACTIONS (2)
  - DEATH [None]
  - CARDIOVASCULAR DISORDER [None]
